FAERS Safety Report 19426487 (Version 2)
Quarter: 2021Q3

REPORT INFORMATION
  Report Type: Spontaneous
  Country: DE (occurrence: DE)
  Receive Date: 20210616
  Receipt Date: 20210709
  Transmission Date: 20211014
  Serious: Yes (Other)
  Sender: FDA-Public Use
  Company Number: NVSC2021DE134515

PATIENT
  Age: 54 Year
  Sex: Male

DRUGS (21)
  1. METHOTREXATE. [Suspect]
     Active Substance: METHOTREXATE
     Dosage: UNK, CYCLIC (CYCLE?A, B; 5 G/M2; 0.5 G/M2 INFUSION OVER 30 MIN AND 4.5 G/M2 INFUSION OVER 23.5H)
     Route: 041
  2. ARA?C [Suspect]
     Active Substance: CYTARABINE
     Dosage: 10 MG, CYCLIC (CYCLE 4 PLUS 6 DAY 6)
     Route: 016
  3. ARA?C [Suspect]
     Active Substance: CYTARABINE
     Dosage: 30 MG, CYCLIC (CYCLE?A, B, DAY 5, CYCLE?C, DAY 7, ROUTE: INTRACEREBROVENTRICULAR)
     Route: 050
  4. METHOTREXATE. [Suspect]
     Active Substance: METHOTREXATE
     Dosage: 2.5 MG, CYCLIC (CYCLE 5) DAY 2, 3 AND 4)
     Route: 042
  5. ARA?C [Suspect]
     Active Substance: CYTARABINE
     Indication: CENTRAL NERVOUS SYSTEM LYMPHOMA
     Dosage: 3000 MG/M2, CYCLIC (CYCLE2 PLUS 6 DAY 1 AND 2)
     Route: 042
  6. IFOSFAMIDE. [Concomitant]
     Active Substance: IFOSFAMIDE
     Dosage: 800 MG/M2, CYCLIC (CYCLE 5 ON DAY 2,3,4 AND 5)
     Route: 042
  7. PREDNISOLONE. [Concomitant]
     Active Substance: PREDNISOLONE
     Indication: CENTRAL NERVOUS SYSTEM LYMPHOMA
     Dosage: 3 MG, CYCLIC (CYCLE?A, DAY 1?4, CYCLE?C, DAY 3?6 AS ICV)
     Route: 050
  8. ARA?C [Suspect]
     Active Substance: CYTARABINE
     Dosage: UNK, CYCLIC (CYCLE?C, 3G/M2, 3 HOUR INFUSION, DAY 1?2)
     Route: 041
  9. VINDESINE [Suspect]
     Active Substance: VINDESINE
     Indication: PRODUCT USED FOR UNKNOWN INDICATION
     Dosage: 5 MG, CYCLIC (CYCLE?C, DAY 1)
     Route: 042
  10. IFOSFAMIDE. [Concomitant]
     Active Substance: IFOSFAMIDE
     Indication: CENTRAL NERVOUS SYSTEM LYMPHOMA
     Dosage: 800 MG/M2, CYCLIC (CYCLE?A, 1 HOUR INFUSION, DAY 2?5)
     Route: 041
  11. METHOTREXATE. [Suspect]
     Active Substance: METHOTREXATE
     Dosage: 4000 MG/M2, CYCLIC (CYCLE 5) ON DAY 1)
     Route: 042
  12. ARA?C [Suspect]
     Active Substance: CYTARABINE
     Dosage: 10 MG, CYCLIC (CYCLE 5 DAY 5)
     Route: 016
  13. METHOTREXATE. [Suspect]
     Active Substance: METHOTREXATE
     Dosage: 2.5 MG, CYCLIC (ON DAY 3, 4 AND 5 CYCLE 4)
     Route: 042
  14. METHOTREXATE. [Suspect]
     Active Substance: METHOTREXATE
     Dosage: 3 MG, CYCLIC (CYCLE?B, DAY 1?4 AS ICV)
     Route: 050
  15. PREDNISOLONE. [Concomitant]
     Active Substance: PREDNISOLONE
     Dosage: 2.5 MG, CYCLIC (CYCLE?A, B, DAY 1?4 ,CYCLE C, DAY 3?6 ROUTE: INTRACEREBROVENTRICULAR)
     Route: 050
  16. RITUXIMAB. [Concomitant]
     Active Substance: RITUXIMAB
     Indication: CENTRAL NERVOUS SYSTEM LYMPHOMA
     Dosage: 500 MG/M2, (CYCLE1?3) ON DAY 0 AND 1
     Route: 042
  17. METHOTREXATE. [Suspect]
     Active Substance: METHOTREXATE
     Indication: CENTRAL NERVOUS SYSTEM LYMPHOMA
     Dosage: 4000 MG/M2, CYCLIC (ON DAY 1 CYCLE1?3)
     Route: 042
  18. DEXAMETHASONE. [Suspect]
     Active Substance: DEXAMETHASONE
     Indication: CENTRAL NERVOUS SYSTEM LYMPHOMA
     Dosage: 20 MG/M2, CYCLIC (CYCLE?C, DAY 3?7)
     Route: 048
  19. DEXAMETHASONE. [Suspect]
     Active Substance: DEXAMETHASONE
     Dosage: 10 MG/M2, CYCLIC (CYCLE?A,B, DAY 2?5)
     Route: 048
  20. VINCRISTINE [Suspect]
     Active Substance: VINCRISTINE
     Indication: PRODUCT USED FOR UNKNOWN INDICATION
     Dosage: 2 MG, CYCLIC (CYCLE?A, B, DAY 1)
     Route: 042
  21. CYCLOPHOSPHAMIDE. [Suspect]
     Active Substance: CYCLOPHOSPHAMIDE
     Indication: CENTRAL NERVOUS SYSTEM LYMPHOMA
     Dosage: 200 MG/M2, CYCLIC (CYCLE?B, 1 HOUR INFUSION, DAY 2?5)
     Route: 041

REACTIONS (2)
  - Product use in unapproved indication [Unknown]
  - Staphylococcal infection [Unknown]
